FAERS Safety Report 9181121 (Version 2)
Quarter: 2013Q1

REPORT INFORMATION
  Report Type: Spontaneous
  Country: US (occurrence: US)
  Receive Date: 20130322
  Receipt Date: 20130322
  Transmission Date: 20140127
  Serious: No
  Sender: FDA-Public Use
  Company Number: US-MYLANLABS-2012S1006613

PATIENT
  Age: 46 Year
  Sex: Female

DRUGS (2)
  1. EMSAM [Suspect]
     Indication: DEPRESSION
     Dosage: CHANGED Q24H
     Route: 062
     Dates: start: 201203, end: 201203
  2. EMSAM [Suspect]
     Indication: DEPRESSION
     Dosage: CHANGED Q24H
     Route: 062
     Dates: start: 201203, end: 20120323

REACTIONS (2)
  - Application site urticaria [Recovering/Resolving]
  - Application site erythema [Recovering/Resolving]
